FAERS Safety Report 7874904-1 (Version None)
Quarter: 2011Q4

REPORT INFORMATION
  Report Type: 
  Country: None (occurrence: None)
  Receive Date: 20111031
  Receipt Date: 20111020
  Transmission Date: 20120403
  Serious: No
  Sender: FDA-Public Use
  Company Number: JP-JNJFOC-20111004536

PATIENT
  Age: 5 Decade
  Sex: Male

DRUGS (6)
  1. REMICADE [Suspect]
     Route: 042
     Dates: start: 20111003
  2. DIURETICS [Concomitant]
     Route: 065
  3. REMICADE [Suspect]
     Indication: CROHN'S DISEASE
     Route: 042
     Dates: start: 20101116
  4. PENTASA [Concomitant]
     Route: 065
  5. ANTIHISTAMINES [Concomitant]
     Route: 065
  6. ELENTAL [Concomitant]
     Route: 048

REACTIONS (4)
  - ALANINE AMINOTRANSFERASE INCREASED [None]
  - RASH [None]
  - STOMATITIS [None]
  - ASPARTATE AMINOTRANSFERASE INCREASED [None]
